FAERS Safety Report 14603455 (Version 1)
Quarter: 2018Q1

REPORT INFORMATION
  Report Type: Spontaneous
  Country: NL (occurrence: NL)
  Receive Date: 20180306
  Receipt Date: 20180306
  Transmission Date: 20180509
  Serious: Yes (Hospitalization)
  Sender: FDA-Public Use
  Company Number: NL-TEVA-2018-NL-862796

PATIENT
  Age: 74 Year
  Sex: Female

DRUGS (3)
  1. ASCAL GEBRUIK [Concomitant]
     Indication: DRUG USE DISORDER
  2. PANTOPRAZOLE GASTRO-RESISTANT TABLET, 40 MG (MILLIGRAM) [Suspect]
     Active Substance: PANTOPRAZOLE
     Indication: DYSPEPSIA
     Dosage: ONCE DAILY 1
     Route: 065
     Dates: start: 1944, end: 20180104
  3. PANTOPRAZOLE GASTRO-RESISTANT TABLET, 40 MG (MILLIGRAM) [Suspect]
     Active Substance: PANTOPRAZOLE
     Indication: DRUG USE DISORDER

REACTIONS (2)
  - Hypomagnesaemia [Recovering/Resolving]
  - Hypocalcaemia [Recovering/Resolving]

NARRATIVE: CASE EVENT DATE: 20180103
